FAERS Safety Report 19068505 (Version 5)
Quarter: 2022Q2

REPORT INFORMATION
  Report Type: Spontaneous
  Country: US (occurrence: US)
  Receive Date: 20210329
  Receipt Date: 20220425
  Transmission Date: 20220720
  Serious: Yes (Other)
  Sender: FDA-Public Use
  Company Number: US-PFIZER INC-2021227594

PATIENT
  Age: 79 Year
  Sex: Female
  Weight: 99.79 kg

DRUGS (1)
  1. TOVIAZ [Suspect]
     Active Substance: FESOTERODINE FUMARATE
     Indication: Bladder disorder
     Dosage: 8 MG, 1X/DAY (MORNING, ONCE A DAY)
     Dates: end: 202204

REACTIONS (5)
  - Myocardial infarction [Unknown]
  - Nausea [Unknown]
  - Frustration tolerance decreased [Unknown]
  - Eye disorder [Not Recovered/Not Resolved]
  - Illness [Unknown]
